FAERS Safety Report 12147719 (Version 3)
Quarter: 2018Q2

REPORT INFORMATION
  Report Type: Report from Study
  Country: None (occurrence: US)
  Receive Date: 20160304
  Receipt Date: 20180409
  Transmission Date: 20180711
  Serious: Yes (Hospitalization, Other)
  Sender: FDA-Public Use
  Company Number: US-ABBVIE-16K-163-1568702-00

PATIENT
  Age: 57 Year
  Sex: Male

DRUGS (1)
  1. HUMIRA [Suspect]
     Active Substance: ADALIMUMAB
     Indication: COLITIS ULCERATIVE
     Route: 058
     Dates: start: 201509

REACTIONS (3)
  - Pancreatitis chronic [Not Recovered/Not Resolved]
  - Colitis ulcerative [Unknown]
  - Pancreatolithiasis [Recovered/Resolved]

NARRATIVE: CASE EVENT DATE: 20160216
